FAERS Safety Report 6668934-5 (Version None)
Quarter: 2010Q2

REPORT INFORMATION
  Report Type: 
  Country: None (occurrence: None)
  Receive Date: 20100401
  Receipt Date: 20100319
  Transmission Date: 20101027
  Serious: Yes (Death, Hospitalization, Disabling)
  Sender: FDA-Public Use
  Company Number: DSA_42543_2010

PATIENT
  Age: 83 Year
  Sex: Female
  Weight: 47 kg

DRUGS (19)
  1. ENALAPRIL MALEATE [Suspect]
     Indication: HYPERTENSION
     Dosage: (5 MG QD ORAL)
     Route: 048
     Dates: end: 20091104
  2. ADALAT [Suspect]
     Indication: HYPERTENSION
     Dosage: (20 MG BID ORAL)
     Route: 048
     Dates: end: 20091104
  3. CORINEAL (CORINEAL L SR - NIFEDIPINE) 20 MG (NOT SPECIFIED) [Suspect]
     Indication: HYPERTENSION
     Dosage: (20 MG BID ORAL)
     Route: 048
     Dates: start: 20091105, end: 20100111
  4. PNEUMOVAX 23 [Suspect]
     Indication: PROPHYLAXIS
     Dosage: (0.5 ML TOTAL SUBCUTANEOUS)
     Route: 058
     Dates: start: 20100107, end: 20100107
  5. BENAZEP - BENAZEPRIL HCL 5 MG [Suspect]
     Indication: HYPERTENSION
     Dosage: (5 MG QD ORAL)
     Route: 048
     Dates: start: 20091105, end: 20100111
  6. PRVASATATINE NA (PRAVASTATIN NA - PRAVASTATIN SODIUM) 10 MG (NOT SPECI [Suspect]
     Indication: LIPID METABOLISM DISORDER
     Dosage: (10 MG QD ORAL)
     Route: 048
     Dates: start: 20091105, end: 20100110
  7. GASMOTIN (GASMOTIN - MOSAPRIDE CITRATE) 5 MG (NOT SPECIFIED) [Suspect]
     Indication: GASTRITIS
     Dosage: (5 MG QD ORAL)
     Route: 048
     Dates: end: 20091104
  8. FAMOTIDINE (FAMOTIDINE D - FAMOTIDINE) 10 MG [Suspect]
     Indication: GASTRITIS
     Dosage: (10 MG QD ORAL)
     Route: 048
     Dates: end: 20091104
  9. LAC-B - BIFIDOBACTERIUM 1 G [Suspect]
     Indication: GASTROINTESTINAL DISORDER THERAPY
     Dosage: (1 G TID ORAL)
     Route: 048
     Dates: start: 20091105, end: 20100110
  10. FERROUS CITRATE [Suspect]
     Indication: ANAEMIA
     Dosage: (50 MG QD ORAL)
     Route: 048
     Dates: start: 20091105, end: 20100110
  11. PRAVASTATIN [Suspect]
     Indication: LIPID METABOLISM DISORDER
     Dosage: (10 MG QD ORAL)
     Route: 048
     Dates: end: 20091104
  12. GASMOTIN (GASMOTIN - MOSAPRIDE CITRATE) 0.5 G (NOT SPECIFIED) [Suspect]
     Indication: GASTRITIS
     Dosage: (0.5 G TID ORAL)
     Route: 048
     Dates: start: 20091102, end: 20100110
  13. MOMIARON - FAMOTIDINE 10 MG [Suspect]
     Indication: GASTRITIS
     Dosage: (10 MG QD ORAL)
     Route: 048
     Dates: start: 20091105, end: 20100110
  14. MIYA-BM (MIYA BM - CLOSTRIDIUM BUTYRICUM) 1 G (NOT SPECIFIED) [Suspect]
     Indication: GASTROINTESTINAL DISORDER
     Dosage: (1 G TID ORAL)
     Route: 048
     Dates: end: 20091104
  15. FEROTYM - SODIUM FERROUS CITRATE 50 MG [Suspect]
     Indication: ANAEMIA
     Dosage: (50 MG QD ORAL)
     Route: 048
     Dates: end: 20091104
  16. EUGLUCON [Concomitant]
  17. SAXIZON [Concomitant]
  18. THEOPHYLLINE [Concomitant]
  19. TULOBUTEROL [Concomitant]

REACTIONS (18)
  - ANAEMIA [None]
  - ARRHYTHMIA [None]
  - ASTHMA [None]
  - BACTERIURIA [None]
  - BLOOD PRESSURE INCREASED [None]
  - BRAIN NATRIURETIC PEPTIDE INCREASED [None]
  - CARDIAC FAILURE [None]
  - CARDIO-RESPIRATORY ARREST [None]
  - CHOKING [None]
  - COLD SWEAT [None]
  - DECREASED APPETITE [None]
  - HAEMOPTYSIS [None]
  - HYPOPHAGIA [None]
  - OEDEMA [None]
  - RENAL FAILURE [None]
  - SPUTUM DISCOLOURED [None]
  - THIRST [None]
  - UNRESPONSIVE TO STIMULI [None]
